FAERS Safety Report 8761500 (Version 3)
Quarter: 2013Q1

REPORT INFORMATION
  Report Type: Spontaneous
  Country: JP (occurrence: JP)
  Receive Date: 20120829
  Receipt Date: 20130226
  Transmission Date: 20140127
  Serious: Yes (Life-Threatening)
  Sender: FDA-Public Use
  Company Number: JP-AMGEN-JPNSP2012054358

PATIENT
  Age: 64 Year
  Sex: Male

DRUGS (5)
  1. ENBREL [Suspect]
     Indication: RHEUMATOID ARTHRITIS
     Dosage: 50 MG, WEEKLY
     Route: 058
     Dates: start: 20120426, end: 20120823
  2. RHEUMATREX                         /00113801/ [Concomitant]
     Indication: RHEUMATOID ARTHRITIS
     Dosage: 14 MG, WEEKLY
     Route: 048
     Dates: start: 201108
  3. RHEUMATREX                         /00113801/ [Concomitant]
     Dosage: 14 MG, QWK
     Route: 048
     Dates: start: 20120525, end: 20121206
  4. FOLIAMIN [Concomitant]
     Dosage: 5 MG, WEEKLY
     Dates: start: 20121008, end: 20121206
  5. ISONIAZID [Concomitant]
     Dosage: UNK
     Dates: start: 20120322, end: 20121106

REACTIONS (1)
  - Malignant neoplasm progression [Unknown]
